FAERS Safety Report 25257765 (Version 2)
Quarter: 2025Q3

REPORT INFORMATION
  Report Type: Report from Study
  Country: US (occurrence: US)
  Receive Date: 20250430
  Receipt Date: 20250803
  Transmission Date: 20251020
  Serious: Yes (Other)
  Sender: ALEXION PHARMACEUTICALS
  Company Number: US-AstraZeneca-CH-00856883A

PATIENT
  Sex: Female

DRUGS (1)
  1. ULTOMIRIS [Suspect]
     Active Substance: RAVULIZUMAB-CWVZ
     Route: 065

REACTIONS (5)
  - Neuropathy peripheral [Not Recovered/Not Resolved]
  - Arthritis [Not Recovered/Not Resolved]
  - Dysgeusia [Unknown]
  - Balance disorder [Unknown]
  - Diarrhoea [Unknown]
